FAERS Safety Report 5699444-X (Version None)
Quarter: 2008Q2

REPORT INFORMATION
  Report Type: 
  Country: None (occurrence: None)
  Receive Date: 20080407
  Receipt Date: 20080407
  Transmission Date: 20081010
  Serious: Yes (Death)
  Sender: FDA-Public Use
  Company Number: None

PATIENT
  Sex: Male
  Weight: 113.3993 kg

DRUGS (1)
  1. PROPOFOL [Suspect]
     Indication: ENDOTRACHEAL INTUBATION
     Dosage: 10 X 10 MG/ML IV OR INJ.
     Route: 042
     Dates: start: 20050920

REACTIONS (3)
  - POOR QUALITY DRUG ADMINISTERED [None]
  - THERAPEUTIC PRODUCT CONTAMINATION [None]
  - TOXICOLOGIC TEST ABNORMAL [None]
